FAERS Safety Report 14976591 (Version 1)
Quarter: 2018Q2

REPORT INFORMATION
  Report Type: Spontaneous
  Country: US (occurrence: US)
  Receive Date: 20180605
  Receipt Date: 20180605
  Transmission Date: 20180711
  Serious: No
  Sender: FDA-Public Use
  Company Number: US-SA-2018SA097980

PATIENT
  Age: 29 Year
  Sex: Female
  Weight: 74.38 kg

DRUGS (8)
  1. DUPIXENT [Suspect]
     Active Substance: DUPILUMAB
     Indication: DERMATITIS ATOPIC
     Dosage: 300 MG,QOW
     Route: 058
  2. QNASL [Concomitant]
     Active Substance: BECLOMETHASONE DIPROPIONATE
     Indication: RHINITIS ALLERGIC
     Dosage: 80 UG,QD
     Route: 065
     Dates: start: 20171221
  3. VITAMIN C [ASCORBIC ACID] [Concomitant]
     Dosage: 1000 MG
  4. DUPIXENT [Suspect]
     Active Substance: DUPILUMAB
     Indication: RHINITIS
     Dosage: 300 MG,QOW
     Route: 058
     Dates: start: 20180113, end: 20180329
  5. MONTELUKAST [Concomitant]
     Active Substance: MONTELUKAST SODIUM
     Indication: ASTHMA
     Dosage: UNK UNK,UNK
     Route: 065
     Dates: start: 20171024
  6. AMOXICILLIN;CLAVULANIC ACID [Concomitant]
     Indication: RHINITIS
     Dosage: 875 MG,BID
     Route: 065
     Dates: start: 20171221, end: 20180105
  7. PREDNISONE. [Concomitant]
     Active Substance: PREDNISONE
     Indication: RHINITIS
     Dosage: UNK UNK,UNK
     Route: 065
     Dates: start: 20180105, end: 20180119
  8. DUPIXENT [Suspect]
     Active Substance: DUPILUMAB
     Indication: NASAL POLYPS

REACTIONS (6)
  - Swelling [Recovered/Resolved]
  - Rash macular [Recovered/Resolved]
  - Pruritus [Recovered/Resolved]
  - Nodular rash [Recovered/Resolved]
  - Injection site erythema [Recovered/Resolved]
  - Hypersensitivity [Unknown]

NARRATIVE: CASE EVENT DATE: 2018
